FAERS Safety Report 5715991-6 (Version None)
Quarter: 2008Q2

REPORT INFORMATION
  Report Type: 
  Country: None (occurrence: None)
  Receive Date: 20080424
  Receipt Date: 20080409
  Transmission Date: 20081010
  Serious: Yes (Other)
  Sender: FDA-Public Use
  Company Number: BE-ELI_LILLY_AND_COMPANY-BE200801003728

PATIENT
  Sex: Male

DRUGS (14)
  1. ALIMTA [Suspect]
     Indication: NON-SMALL CELL LUNG CANCER
     Dosage: UNK, UNKNOWN
     Route: 065
     Dates: start: 20060228, end: 20060401
  2. MEDROL [Concomitant]
     Indication: NON-SMALL CELL LUNG CANCER
  3. XANTHIUM [Concomitant]
     Dosage: UNK, UNKNOWN
     Route: 065
  4. NOVONORM [Concomitant]
     Dosage: UNK, UNKNOWN
     Route: 065
  5. METFORMIN HCL [Concomitant]
     Dosage: UNK, UNKNOWN
     Route: 065
  6. FENOFIBRATE [Concomitant]
     Dosage: UNK, UNKNOWN
     Route: 065
  7. FELODIPINE [Concomitant]
     Dosage: UNK, UNKNOWN
     Route: 065
  8. DEPAKENE [Concomitant]
     Dosage: UNK, UNKNOWN
     Route: 065
  9. LISINOPRIL [Concomitant]
     Dosage: UNK, UNKNOWN
     Route: 065
  10. ASAFLOW [Concomitant]
     Dosage: UNK, UNKNOWN
     Route: 065
  11. ZALDIAR [Concomitant]
     Dosage: UNK, UNKNOWN
     Route: 065
  12. PANTOZOL [Concomitant]
     Dosage: UNK, UNKNOWN
     Route: 065
  13. SPIRIVA [Concomitant]
     Dosage: UNK, UNKNOWN
     Route: 065
  14. SERETIDE [Concomitant]
     Dosage: UNK, UNKNOWN
     Route: 065

REACTIONS (1)
  - ACUTE GENERALISED EXANTHEMATOUS PUSTULOSIS [None]
